FAERS Safety Report 17945529 (Version 1)
Quarter: 2020Q2

REPORT INFORMATION
  Report Type: Report from Study
  Country: DE (occurrence: DE)
  Receive Date: 20200625
  Receipt Date: 20200625
  Transmission Date: 20200714
  Serious: Yes (Death, Hospitalization, Other)
  Sender: FDA-Public Use
  Company Number: DE-BRISTOL-MYERS SQUIBB COMPANY-BMS-2020-041742

PATIENT
  Age: 91 Year
  Sex: Female
  Weight: 65 kg

DRUGS (5)
  1. TRAMAL RETARD [Concomitant]
     Active Substance: TRAMADOL
     Indication: SPINAL STENOSIS
     Dosage: 1-1-1 BEI BEDARF
     Route: 048
     Dates: start: 2008
  2. APIXABAN [Suspect]
     Active Substance: APIXABAN
     Indication: CEREBROVASCULAR ACCIDENT PROPHYLAXIS
     Route: 048
  3. IBUPROFEN. [Concomitant]
     Active Substance: IBUPROFEN
     Indication: SPINAL STENOSIS
     Dosage: 1800 MILLIGRAM, QD
     Route: 048
     Dates: start: 2008
  4. L-THYROXINE [LEVOTHYROXINE SODIUM] [Concomitant]
     Active Substance: LEVOTHYROXINE SODIUM
     Indication: HYPOTHYROIDISM
     Dosage: 50 MICROGRAM
     Route: 048
     Dates: start: 2008
  5. MUSARIL [Concomitant]
     Active Substance: TETRAZEPAM
     Indication: SPINAL STENOSIS
     Dosage: 1-0-1 BEI BEDARF
     Route: 048
     Dates: start: 2008

REACTIONS (3)
  - Cerebellar haemorrhage [Fatal]
  - Disturbance in attention [Fatal]
  - Intraventricular haemorrhage [Fatal]

NARRATIVE: CASE EVENT DATE: 20200427
